FAERS Safety Report 14384752 (Version 3)
Quarter: 2018Q1

REPORT INFORMATION
  Report Type: Spontaneous
  Country: FR (occurrence: FR)
  Receive Date: 20180115
  Receipt Date: 20180315
  Transmission Date: 20180509
  Serious: Yes (Life-Threatening, Hospitalization, Other)
  Sender: FDA-Public Use
  Company Number: FR-009507513-1801FRA004001

PATIENT
  Age: 59 Year
  Sex: Female
  Weight: 51 kg

DRUGS (15)
  1. PREGABALIN. [Concomitant]
     Active Substance: PREGABALIN
     Dosage: DOSE 150 MG, 1 CAPSULE MORNING AND EVENING
     Route: 048
     Dates: end: 20180101
  2. BROMAZEPAM [Concomitant]
     Active Substance: BROMAZEPAM
     Dosage: 1 TABLET IF NEEDED, 4 TABLETS MAX/24 HOURS WITH INTERVAL OF 2 HOURS BETWEEN 2 INTAKES
     Route: 048
     Dates: end: 20180101
  3. BROMAZEPAM [Concomitant]
     Active Substance: BROMAZEPAM
     Dosage: DOSE 1.5 MG, BID (150 MG, 1 CAPSULE MORNING AND EVENING)
     Route: 048
     Dates: end: 20180101
  4. NEFOPAM [Concomitant]
     Active Substance: NEFOPAM
     Dosage: UNK
  5. ACTISKENAN [Concomitant]
     Active Substance: MORPHINE SULFATE
     Dosage: 1 CAPSULE IF NEEDED, 6 CAPSULES MAX/24 HOURS WITH INTERVAL OF 2 HOURS BETWEEN 2 INTAKES
     Route: 048
  6. NEFOPAM [Concomitant]
     Active Substance: NEFOPAM
     Dosage: 20 MG, INJECTABLE SOLUTION, AMPOUL 2 ML, 2 ML - 20 MG 10 AM, 4 PM, 10 PM
     Route: 048
     Dates: end: 20180101
  7. SKENAN [Concomitant]
     Active Substance: MORPHINE SULFATE
     Dosage: 10 MG, BID (2 CAPSULES AT 8 AM AND 8 PM)
     Route: 048
  8. IMOVANE [Concomitant]
     Active Substance: ZOPICLONE
     Dosage: DOSE 7.5 MG, HS (1 TABLE AT NIGHT)
     Route: 048
  9. POLYETHYLENE GLYCOL 4000 [Concomitant]
     Active Substance: POLYETHYLENE GLYCOL 4000
     Dosage: 10 MG, QD
     Route: 048
     Dates: end: 20180101
  10. PREGABALIN. [Concomitant]
     Active Substance: PREGABALIN
     Dosage: DOSE 25 MG, 1 CAPSULE EVENING)
     Route: 048
     Dates: end: 20180101
  11. DOLIPRANE [Concomitant]
     Active Substance: ACETAMINOPHEN
     Dosage: DOES 10 MG, TID (1 TABLET MORNING, MIDDAY AND EVENING)
     Route: 048
  12. MORPHINE [Concomitant]
     Active Substance: MORPHINE
     Indication: BONE PAIN
     Dosage: DOSE 20 MG X 2
     Dates: start: 201711, end: 20180101
  13. KETOPROFEN. [Concomitant]
     Active Substance: KETOPROFEN
     Indication: BONE PAIN
     Dosage: DOSE 100 MG X 2
     Route: 048
     Dates: start: 201711, end: 20180101
  14. PANTOPRAZOLE [Concomitant]
     Active Substance: PANTOPRAZOLE
     Dosage: DOSE 20 MG, QD (1 TABLET IN THE EVENING)
     Route: 048
     Dates: end: 20180101
  15. PEMBROLIZUMAB. [Suspect]
     Active Substance: PEMBROLIZUMAB
     Indication: NON-SMALL CELL LUNG CANCER METASTATIC
     Dosage: 200 MG, UNK
     Route: 042
     Dates: start: 20171226

REACTIONS (3)
  - Acute kidney injury [Recovered/Resolved]
  - Coma [Recovered/Resolved]
  - Pneumococcal sepsis [Recovered/Resolved]

NARRATIVE: CASE EVENT DATE: 201801
